FAERS Safety Report 8971727 (Version 1)
Quarter: 2012Q4

REPORT INFORMATION
  Report Type: 
  Country: JP (occurrence: JP)
  Receive Date: 20121217
  Receipt Date: 20121217
  Transmission Date: 20130627
  Serious: Yes (Hospitalization)
  Sender: FDA-Public Use
  Company Number: JP-ASTRAZENECA-2012SE92540

PATIENT
  Age: 74 Year
  Sex: Male

DRUGS (2)
  1. ZOLADEX [Suspect]
     Route: 058
  2. ODYNE [Concomitant]

REACTIONS (1)
  - Osteomyelitis [Unknown]
